FAERS Safety Report 6890071-5 (Version None)
Quarter: 2010Q3

REPORT INFORMATION
  Report Type: 
  Country: None (occurrence: None)
  Receive Date: 20100730
  Receipt Date: 20080724
  Transmission Date: 20110219
  Serious: No
  Sender: FDA-Public Use
  Company Number: US-PFIZER INC-2008061814

PATIENT
  Age: 86 Year
  Sex: Female

DRUGS (1)
  1. LIPITOR [Suspect]
     Dates: start: 20080701, end: 20080701

REACTIONS (1)
  - BLISTER [None]
